FAERS Safety Report 7063281-4 (Version None)
Quarter: 2010Q4

REPORT INFORMATION
  Report Type: 
  Country: None (occurrence: None)
  Receive Date: 20101026
  Receipt Date: 20100712
  Transmission Date: 20110411
  Serious: Yes (Other)
  Sender: FDA-Public Use
  Company Number: US-PFIZER INC-2010087331

PATIENT
  Sex: Male
  Weight: 113.38 kg

DRUGS (6)
  1. LIPITOR [Suspect]
     Indication: HIGH DENSITY LIPOPROTEIN DECREASED
     Dosage: 10 MG, DAILY
     Route: 048
     Dates: end: 20100707
  2. ATENOLOL [Concomitant]
     Indication: HYPERTENSION
     Dosage: UNK
  3. HYDROCHLOROTHIAZIDE [Concomitant]
     Indication: HYPERTENSION
     Dosage: UNK
  4. LISINOPRIL [Concomitant]
     Indication: HYPERTENSION
     Dosage: UNK
  5. ZOLOFT [Concomitant]
     Dosage: UNK
  6. TESTIM [Concomitant]
     Dosage: UNK

REACTIONS (2)
  - MYALGIA [None]
  - TENDON RUPTURE [None]
